FAERS Safety Report 8252626-5 (Version None)
Quarter: 2012Q2

REPORT INFORMATION
  Report Type: 
  Country: None (occurrence: None)
  Receive Date: 20120402
  Receipt Date: 20110819
  Transmission Date: 20120825
  Serious: No
  Sender: FDA-Public Use
  Company Number: US-ABBOTT-11P-163-0843363-00

PATIENT
  Age: 72 Year
  Sex: Male
  Weight: 77.18 kg

DRUGS (5)
  1. ANDROGEL [Suspect]
  2. UNKNOWN BLOOD PRESSURE MEDICATION [Concomitant]
     Indication: HYPERTENSION
  3. ANDROGEL [Suspect]
     Indication: BLOOD TESTOSTERONE DECREASED
     Dosage: 3 PUMPS DAILY
     Dates: start: 20100501, end: 20110801
  4. ANDROGEL [Suspect]
     Dosage: 4 PUMPS DAILY
     Dates: start: 20110801
  5. UNKNOWN CHOLESTEROL MEDICATION [Concomitant]
     Indication: BLOOD CHOLESTEROL INCREASED

REACTIONS (1)
  - BLOOD TESTOSTERONE ABNORMAL [None]
